FAERS Safety Report 11457943 (Version 2)
Quarter: 2015Q4

REPORT INFORMATION
  Report Type: Spontaneous
  Country: US (occurrence: US)
  Receive Date: 20150904
  Receipt Date: 20151110
  Transmission Date: 20160304
  Serious: Yes (Hospitalization)
  Sender: FDA-Public Use
  Company Number: US-BIOGENIDEC-2015BI121008

PATIENT
  Age: 28 Year
  Sex: Female

DRUGS (3)
  1. GABAPENTIN. [Concomitant]
     Active Substance: GABAPENTIN
     Indication: EPILEPSY
  2. DILANTIN [Concomitant]
     Active Substance: PHENYTOIN
     Indication: EPILEPSY
     Dates: start: 20091124
  3. TECFIDERA [Suspect]
     Active Substance: DIMETHYL FUMARATE
     Indication: MULTIPLE SCLEROSIS
     Dates: start: 20130822, end: 201312

REACTIONS (3)
  - Restrictive cardiomyopathy [Recovered/Resolved with Sequelae]
  - Malaise [Unknown]
  - Eosinophilic myocarditis [Recovered/Resolved with Sequelae]

NARRATIVE: CASE EVENT DATE: 201309
